FAERS Safety Report 10843426 (Version 1)
Quarter: 2015Q1

REPORT INFORMATION
  Report Type: Spontaneous
  Country: US (occurrence: US)
  Receive Date: 20150220
  Receipt Date: 20150220
  Transmission Date: 20150721
  Serious: No
  Sender: FDA-Public Use
  Company Number: US-ABBVIE-14P-163-1256967-00

PATIENT
  Age: 35 Year
  Sex: Female
  Weight: 71.73 kg

DRUGS (7)
  1. NEXIUM [Concomitant]
     Active Substance: ESOMEPRAZOLE MAGNESIUM
     Indication: DYSPHAGIA
  2. ONDANSETRON [Concomitant]
     Active Substance: ONDANSETRON
     Indication: NAUSEA
  3. NEXIUM [Concomitant]
     Active Substance: ESOMEPRAZOLE MAGNESIUM
     Indication: GASTROOESOPHAGEAL REFLUX DISEASE
  4. HUMIRA [Suspect]
     Active Substance: ADALIMUMAB
  5. ONDANSETRON [Concomitant]
     Active Substance: ONDANSETRON
     Indication: ABDOMINAL PAIN
  6. HUMIRA [Suspect]
     Active Substance: ADALIMUMAB
     Dates: start: 20140704, end: 20140704
  7. HUMIRA [Suspect]
     Active Substance: ADALIMUMAB
     Indication: CROHN^S DISEASE
     Dates: start: 201406, end: 201406

REACTIONS (7)
  - Dyspnoea [Recovered/Resolved]
  - Rash pustular [Recovering/Resolving]
  - Arthralgia [Recovered/Resolved]
  - Malaise [Unknown]
  - Migraine [Recovering/Resolving]
  - Headache [Unknown]
  - Rash pustular [Unknown]

NARRATIVE: CASE EVENT DATE: 201406
